FAERS Safety Report 8384740-8 (Version None)
Quarter: 2012Q2

REPORT INFORMATION
  Report Type: 
  Country: None (occurrence: None)
  Receive Date: 20120524
  Receipt Date: 20120517
  Transmission Date: 20120825
  Serious: Yes (Hospitalization)
  Sender: FDA-Public Use
  Company Number: CZ-ABBOTT-12P-217-0936302-00

PATIENT
  Sex: Male
  Weight: 78 kg

DRUGS (3)
  1. HUMIRA [Suspect]
     Indication: RHEUMATOID ARTHRITIS
     Route: 058
     Dates: start: 20111201
  2. FOLIC ACID [Concomitant]
     Indication: PROPHYLAXIS
     Dosage: 1.43 MG DAILY
     Route: 048
     Dates: start: 20060521
  3. METHOTREXATE [Concomitant]
     Indication: RHEUMATOID ARTHRITIS
     Dosage: 2.86 MG DAILY
     Route: 048
     Dates: start: 20060520

REACTIONS (1)
  - CYSTOGRAM [None]
